FAERS Safety Report 9257640 (Version 3)
Quarter: 2013Q3

REPORT INFORMATION
  Report Type: Report from Study
  Country: GB (occurrence: GB)
  Receive Date: 20130426
  Receipt Date: 20130708
  Transmission Date: 20140515
  Serious: Yes (Other)
  Sender: FDA-Public Use
  Company Number: GB-JNJFOC-20130412146

PATIENT
  Age: 79 Year
  Sex: Female

DRUGS (2)
  1. REMICADE [Suspect]
     Indication: RHEUMATOID ARTHRITIS
     Route: 042
     Dates: start: 20020724, end: 20050616
  2. ASPIRIN [Concomitant]
     Route: 065

REACTIONS (1)
  - Squamous cell carcinoma [Recovered/Resolved]
